FAERS Safety Report 22633000 (Version 1)
Quarter: 2023Q2

REPORT INFORMATION
  Report Type: Report from Study
  Country: CA (occurrence: CA)
  Receive Date: 20230623
  Receipt Date: 20230623
  Transmission Date: 20230721
  Serious: Yes (Hospitalization)
  Sender: FDA-Public Use
  Company Number: CA-CHIESI-2023CHF03120

PATIENT
  Age: 73 Year
  Sex: Male

DRUGS (3)
  1. DEFERIPRONE [Suspect]
     Active Substance: DEFERIPRONE
     Indication: Thalassaemia
     Dosage: 1000 MILLIGRAM, TID
     Route: 048
     Dates: start: 20230324
  2. DEFERIPRONE [Suspect]
     Active Substance: DEFERIPRONE
     Indication: Transfusion
  3. DEFERIPRONE [Suspect]
     Active Substance: DEFERIPRONE
     Indication: Cardiac iron overload

REACTIONS (5)
  - Nasal congestion [Not Recovered/Not Resolved]
  - Breath sounds abnormal [Not Recovered/Not Resolved]
  - Oxygen saturation decreased [Not Recovered/Not Resolved]
  - Infection [Not Recovered/Not Resolved]
  - Cough [Not Recovered/Not Resolved]

NARRATIVE: CASE EVENT DATE: 20230601
